FAERS Safety Report 14986422 (Version 1)
Quarter: 2018Q2

REPORT INFORMATION
  Report Type: Spontaneous
  Country: FR (occurrence: FR)
  Receive Date: 20180607
  Receipt Date: 20180607
  Transmission Date: 20180711
  Serious: Yes (Life-Threatening)
  Sender: FDA-Public Use
  Company Number: FR-ASTRAZENECA-2018SE72456

PATIENT
  Age: 47 Year
  Sex: Female

DRUGS (4)
  1. NALMEFENE HYDROCHLORIDE [Suspect]
     Active Substance: NALMEFENE HYDROCHLORIDE
     Indication: ALCOHOLISM
     Route: 048
     Dates: start: 20161118, end: 20161207
  2. EFFEXOR [Suspect]
     Active Substance: VENLAFAXINE HYDROCHLORIDE
     Indication: AFFECTIVE DISORDER
     Route: 048
     Dates: start: 20161028, end: 20161207
  3. XANAX [Suspect]
     Active Substance: ALPRAZOLAM
     Indication: ANXIETY
     Dosage: 50 MG DAILY (HALF TABLET AT NOON AND 1 TABLET IN EVENING)
     Route: 065
     Dates: end: 20161207
  4. XEROQUEL LP [Suspect]
     Active Substance: QUETIAPINE FUMARATE
     Indication: AFFECTIVE DISORDER
     Route: 048
     Dates: start: 20161118, end: 20161207

REACTIONS (1)
  - Thrombotic thrombocytopenic purpura [Recovering/Resolving]

NARRATIVE: CASE EVENT DATE: 20161207
